FAERS Safety Report 13285898 (Version 1)
Quarter: 2017Q1

REPORT INFORMATION
  Report Type: Spontaneous
  Country: US (occurrence: US)
  Receive Date: 20170302
  Receipt Date: 20170302
  Transmission Date: 20170428
  Serious: No
  Sender: FDA-Public Use
  Company Number: US-ALLERGAN-1000086905

PATIENT
  Age: 23 Year
  Sex: Female

DRUGS (1)
  1. VIIBRYD [Suspect]
     Active Substance: VILAZODONE HYDROCHLORIDE
     Indication: ANXIETY
     Dosage: 40 MG, QD
     Route: 048

REACTIONS (4)
  - Nightmare [Unknown]
  - Drug dose omission [Unknown]
  - Off label use [Unknown]
  - Sleep paralysis [Unknown]

NARRATIVE: CASE EVENT DATE: 20160815
